FAERS Safety Report 12846712 (Version 2)
Quarter: 2016Q4

REPORT INFORMATION
  Report Type: Spontaneous
  Country: US (occurrence: US)
  Receive Date: 20161014
  Receipt Date: 20161215
  Transmission Date: 20170207
  Serious: No
  Sender: FDA-Public Use
  Company Number: US-PFIZER INC-2016478532

PATIENT
  Age: 51 Year
  Sex: Female
  Weight: 99 kg

DRUGS (2)
  1. LETROZOLE. [Concomitant]
     Active Substance: LETROZOLE
     Dosage: UNK
     Dates: start: 20160924
  2. IBRANCE [Suspect]
     Active Substance: PALBOCICLIB
     Dosage: 125 MG, CYCLIC (21 DAYS, FOLLOWED BY A 7 DAY BREAK, FOR A 28 DAY CYCLE)
     Dates: start: 20160924

REACTIONS (5)
  - Constipation [Recovered/Resolved]
  - Weight decreased [Unknown]
  - Nausea [Unknown]
  - Dysphagia [Unknown]
  - Tearfulness [Unknown]
